FAERS Safety Report 15268095 (Version 3)
Quarter: 2018Q3

REPORT INFORMATION
  Report Type: Spontaneous
  Country: US (occurrence: US)
  Receive Date: 20180812
  Receipt Date: 20180826
  Transmission Date: 20181010
  Serious: No
  Sender: FDA-Public Use
  Company Number: US-JNJFOC-20180738819

PATIENT
  Sex: Female
  Weight: 68.04 kg

DRUGS (2)
  1. VICODIN [Concomitant]
     Active Substance: ACETAMINOPHEN\HYDROCODONE BITARTRATE
     Indication: ARTHRITIS
     Route: 065
  2. FENTANYL TRANSDERMAL SYSTEM [Suspect]
     Active Substance: FENTANYL
     Indication: DISLOCATION OF VERTEBRA
     Dosage: EVERY 72 HOURS
     Route: 062

REACTIONS (2)
  - Depressed mood [Not Recovered/Not Resolved]
  - Product availability issue [Unknown]
